FAERS Safety Report 4608499-2 (Version None)
Quarter: 2005Q1

REPORT INFORMATION
  Report Type: 
  Country: None (occurrence: None)
  Receive Date: 20050315
  Receipt Date: 20050125
  Transmission Date: 20050727
  Serious: Yes (Life-Threatening, Hospitalization)
  Sender: FDA-Public Use
  Company Number: 200510705GDDC

PATIENT
  Age: 86 Year
  Sex: Female

DRUGS (3)
  1. TERTENSIF - SLOW RELEASE [Suspect]
     Route: 048
     Dates: start: 20031117, end: 20040726
  2. TORSEMIDE [Suspect]
     Route: 048
     Dates: start: 20040601, end: 20040726
  3. VALSARTAN [Suspect]
     Route: 048
     Dates: start: 20031116, end: 20040726

REACTIONS (1)
  - RENAL FAILURE CHRONIC [None]
